FAERS Safety Report 9009021 (Version 1)
Quarter: 2013Q1

REPORT INFORMATION
  Report Type: Spontaneous
  Country: US (occurrence: US)
  Receive Date: 20130111
  Receipt Date: 20130111
  Transmission Date: 20140127
  Serious: No
  Sender: FDA-Public Use
  Company Number: US-009507513-1301USA003431

PATIENT
  Age: 69 Year
  Sex: Female

DRUGS (3)
  1. ASMANEX TWISTHALER [Suspect]
     Indication: ASTHMA
     Dosage: 2 DF, BID
     Route: 055
  2. MICARDIS HCT [Concomitant]
  3. ANTIMICROBIAL (UNSPECIFIED) [Concomitant]

REACTIONS (6)
  - Cough [Unknown]
  - Depressed mood [Unknown]
  - Drug dose omission [Unknown]
  - Inappropriate schedule of drug administration [Unknown]
  - Accidental exposure to product [Unknown]
  - Product quality issue [Unknown]
